FAERS Safety Report 6179535-X (Version None)
Quarter: 2009Q2

REPORT INFORMATION
  Report Type: 
  Country: None (occurrence: None)
  Receive Date: 20090505
  Receipt Date: 20090429
  Transmission Date: 20091009
  Serious: Yes (Disabling, Other)
  Sender: FDA-Public Use
  Company Number: CA-ASTRAZENECA-2009UW09697

PATIENT
  Sex: Female

DRUGS (5)
  1. PULMICORT [Suspect]
     Indication: ASTHMA
     Dosage: 1 PUFF
     Route: 055
  2. BRICANYL [Suspect]
     Indication: ASTHMA
     Dosage: 1 PUFF
     Route: 055
  3. RHINOCORT [Concomitant]
     Indication: MULTIPLE ALLERGIES
  4. NASONEX [Concomitant]
     Indication: MULTIPLE ALLERGIES
  5. ZADITOR [Concomitant]
     Indication: MULTIPLE ALLERGIES

REACTIONS (2)
  - ASTHMA [None]
  - DRUG INEFFECTIVE [None]
